FAERS Safety Report 5448837-4 (Version None)
Quarter: 2007Q3

REPORT INFORMATION
  Report Type: 
  Country: None (occurrence: None)
  Receive Date: 20070911
  Receipt Date: 20070713
  Transmission Date: 20080115
  Serious: No
  Sender: FDA-Public Use
  Company Number: US-BRISTOL-MYERS SQUIBB COMPANY-13845169

PATIENT
  Age: 73 Year
  Sex: Male

DRUGS (2)
  1. EMSAM [Suspect]
     Indication: MAJOR DEPRESSION
     Route: 062
  2. KLONOPIN [Concomitant]

REACTIONS (1)
  - APPLICATION SITE RASH [None]
